FAERS Safety Report 20081958 (Version 2)
Quarter: 2021Q4

REPORT INFORMATION
  Report Type: Spontaneous
  Country: DE (occurrence: DE)
  Receive Date: 20211117
  Receipt Date: 20211129
  Transmission Date: 20220304
  Serious: Yes (Hospitalization, Other)
  Sender: FDA-Public Use
  Company Number: DE-002147023-NVSC2021DE196327

PATIENT
  Age: 55 Year
  Sex: Female

DRUGS (5)
  1. CYCLOSPORINE [Suspect]
     Active Substance: CYCLOSPORINE
     Indication: Immunosuppression
     Dosage: UNK
     Route: 065
  2. TACROLIMUS [Suspect]
     Active Substance: TACROLIMUS
     Indication: Immunosuppression
     Dosage: UNK
     Route: 065
  3. CERTICAN [Suspect]
     Active Substance: EVEROLIMUS
     Indication: Immunosuppression
     Dosage: UNK
     Route: 065
  4. CERTICAN [Suspect]
     Active Substance: EVEROLIMUS
     Dosage: 1.5 MILLIGRAM, BID (3 MILLIGRAM, QD)
     Route: 065
     Dates: start: 20200827, end: 202012
  5. CERTICAN [Suspect]
     Active Substance: EVEROLIMUS
     Dosage: 3 MILLIGRAM, QD (1.5 MG, BID)
     Route: 065
     Dates: start: 202009, end: 202012

REACTIONS (4)
  - Bronchopulmonary aspergillosis [Recovered/Resolved]
  - Pneumonitis [Recovered/Resolved]
  - Lymphocytosis [Unknown]
  - BK virus infection [Recovered/Resolved]

NARRATIVE: CASE EVENT DATE: 20201201
